FAERS Safety Report 8174851-4 (Version None)
Quarter: 2012Q1

REPORT INFORMATION
  Report Type: 
  Country: None (occurrence: None)
  Receive Date: 20120229
  Receipt Date: 20110204
  Transmission Date: 20120608
  Serious: No
  Sender: FDA-Public Use
  Company Number: US-GLAXOSMITHKLINE-A0911990A

PATIENT
  Age: 29 Year
  Sex: Female

DRUGS (2)
  1. VALTREX [Suspect]
     Indication: GENITAL HERPES
     Dosage: 500MG PER DAY
     Route: 048
     Dates: start: 20100601, end: 20101201
  2. NO CONCURRENT MEDICATION [Concomitant]

REACTIONS (5)
  - MALAISE [None]
  - CHROMATURIA [None]
  - IMMUNOSUPPRESSION [None]
  - DRUG INEFFECTIVE [None]
  - ACNE [None]
